FAERS Safety Report 15320393 (Version 1)
Quarter: 2018Q3

REPORT INFORMATION
  Report Type: Spontaneous
  Country: FR (occurrence: FR)
  Receive Date: 20180827
  Receipt Date: 20180827
  Transmission Date: 20181010
  Serious: Yes (Other)
  Sender: FDA-Public Use
  Company Number: FR-SUN PHARMACEUTICAL INDUSTRIES LTD-2018RR-182540

PATIENT
  Age: 20 Year
  Sex: Male

DRUGS (13)
  1. OXALIPLATIN. [Suspect]
     Active Substance: OXALIPLATIN
     Dosage: 5 CYCLES
     Route: 065
     Dates: start: 200903
  2. IRINOTECAN [Suspect]
     Active Substance: IRINOTECAN
     Dosage: 150 MG/M2, EVERY 2 WEEKS; 5 CYCLES
     Dates: start: 200701
  3. OXALIPLATIN. [Suspect]
     Active Substance: OXALIPLATIN
     Indication: COLORECTAL CANCER
     Dosage: 12 CYCLES
     Route: 065
     Dates: start: 200203, end: 200208
  4. IRINOTECAN [Suspect]
     Active Substance: IRINOTECAN
     Dosage: 180 MG/M2, EVERY TWO WEEKS (Q2W); DRUG DOSE WAS DECREASED
     Route: 065
  5. FLUOROURACIL. [Suspect]
     Active Substance: FLUOROURACIL
     Dosage: SECOND?LINE, DISCONTINUED AFTER 4 CYCLES
     Route: 065
     Dates: start: 2003
  6. CETUXIMAB. [Suspect]
     Active Substance: CETUXIMAB
     Indication: COLORECTAL CANCER
     Dosage: 400 MG/M2, THIRD?LINE TREATMENT; THE FIRST INJECTION; STOPED AFTER 12 COURSES OF CETUXIMAB AND IRINO
     Route: 065
     Dates: start: 200408
  7. IRINOTECAN [Suspect]
     Active Substance: IRINOTECAN
     Indication: COLORECTAL CANCER
     Dosage: SECOND LINE CHEMOTHERAPY; DISCONTINUED AFTER 4 CYCLES
     Route: 065
     Dates: start: 2003
  8. CETUXIMAB. [Suspect]
     Active Substance: CETUXIMAB
     Dosage: 250 MG EVERY WEEK (QW); 400 MG/M2, THIRD?LINE TREATMENT; THE FIRST INJECTION; STOPED AFTER 12 COURSE
     Route: 065
     Dates: end: 200502
  9. IRINOTECAN [Suspect]
     Active Substance: IRINOTECAN
     Dosage: 150 MG/M2
     Route: 065
     Dates: start: 200408, end: 200502
  10. CETUXIMAB. [Suspect]
     Active Substance: CETUXIMAB
     Dosage: 250 MG/M2 EVERY WEEK; TREATMENT RESTARTED; 5 CYCLES
     Route: 065
     Dates: start: 200701
  11. CETUXIMAB. [Suspect]
     Active Substance: CETUXIMAB
     Dosage: 250 MG/M2, EVERY WEEK; 5 CYCLES
     Route: 065
     Dates: start: 200903
  12. FLUOROURACIL. [Suspect]
     Active Substance: FLUOROURACIL
     Dosage: 5 CYCLES
     Route: 065
     Dates: start: 200903
  13. FLUOROURACIL. [Suspect]
     Active Substance: FLUOROURACIL
     Indication: COLORECTAL CANCER
     Dosage: 12 CYCLES
     Route: 065
     Dates: start: 200203, end: 200208

REACTIONS (5)
  - Disease recurrence [Unknown]
  - Diarrhoea [Unknown]
  - Drug effect incomplete [Unknown]
  - Disease progression [Unknown]
  - Adverse drug reaction [Unknown]

NARRATIVE: CASE EVENT DATE: 200611
